FAERS Safety Report 25599979 (Version 1)
Quarter: 2025Q3

REPORT INFORMATION
  Report Type: Spontaneous
  Country: US (occurrence: US)
  Receive Date: 20250724
  Receipt Date: 20250724
  Transmission Date: 20251020
  Serious: Yes (Other)
  Sender: UCB
  Company Number: US-UCBSA-2025044891

PATIENT
  Sex: Male
  Weight: 97 kg

DRUGS (1)
  1. CIMZIA [Suspect]
     Active Substance: CERTOLIZUMAB PEGOL
     Indication: Rheumatoid arthritis
     Dosage: 400 MILLIGRAM, EV 2 WEEKS(QOW) WEEK 0, 2, AND 4
     Route: 058
     Dates: start: 20241214

REACTIONS (2)
  - Toe amputation [Unknown]
  - Intentional dose omission [Unknown]
